FAERS Safety Report 19369497 (Version 3)
Quarter: 2021Q3

REPORT INFORMATION
  Report Type: Spontaneous
  Country: BR (occurrence: BR)
  Receive Date: 20210603
  Receipt Date: 20210721
  Transmission Date: 20211014
  Serious: Yes (Other)
  Sender: FDA-Public Use
  Company Number: BR-009507513-2105BRA006731

PATIENT
  Sex: Female

DRUGS (4)
  1. LOSARTAN POTASSIUM. [Concomitant]
     Active Substance: LOSARTAN POTASSIUM
     Dosage: UNK
     Route: 048
  2. JANUMET XR [Suspect]
     Active Substance: METFORMIN HYDROCHLORIDE\SITAGLIPTIN PHOSPHATE
     Dosage: TWICE A DAY, 1 TABLET AFTER LUNCH AND 01 TABLET AFTER DINNER.
     Route: 048
  3. JANUMET XR [Suspect]
     Active Substance: METFORMIN HYDROCHLORIDE\SITAGLIPTIN PHOSPHATE
     Indication: TYPE 2 DIABETES MELLITUS
     Dosage: TWICE A DAY, 1 TABLET AFTER LUNCH AND 01 TABLET AFTER DINNER.
     Route: 048
  4. DIAMICRON MR [Suspect]
     Active Substance: GLICLAZIDE
     Dosage: 2 TABLETS IN THE MORNING
     Route: 048

REACTIONS (5)
  - Product solubility abnormal [Unknown]
  - Diabetes mellitus inadequate control [Unknown]
  - Blood glucose increased [Unknown]
  - Inappropriate schedule of product administration [Unknown]
  - Product residue present [Unknown]
